FAERS Safety Report 25619073 (Version 1)
Quarter: 2025Q3

REPORT INFORMATION
  Report Type: Report from Study
  Country: CA (occurrence: CA)
  Receive Date: 20250729
  Receipt Date: 20250729
  Transmission Date: 20251021
  Serious: Yes (Other)
  Sender: ABBVIE
  Company Number: CA-ABBVIE-6388842

PATIENT
  Age: 64 Year
  Sex: Female

DRUGS (2)
  1. HUMIRA [Suspect]
     Active Substance: ADALIMUMAB
     Indication: Rheumatoid arthritis
     Route: 058
     Dates: end: 2025
  2. HUMIRA [Suspect]
     Active Substance: ADALIMUMAB
     Dosage: ON 22 JUL 2025 LAST INJECTION WAS ADMINISTERED.?FIRST ADMIN DATE WAS 2025
     Route: 058

REACTIONS (2)
  - Hysterectomy [Unknown]
  - Cystocele [Unknown]

NARRATIVE: CASE EVENT DATE: 20250501
